FAERS Safety Report 18970972 (Version 1)
Quarter: 2021Q1

REPORT INFORMATION
  Report Type: Spontaneous
  Country: FR (occurrence: FR)
  Receive Date: 20210305
  Receipt Date: 20210305
  Transmission Date: 20210420
  Serious: Yes (Death, Hospitalization, Other)
  Sender: FDA-Public Use
  Company Number: FR-BRISTOL-MYERS SQUIBB COMPANY-BMS-2021-020548

PATIENT
  Age: 70 Year
  Sex: Male
  Weight: 73 kg

DRUGS (2)
  1. YERVOY [Suspect]
     Active Substance: IPILIMUMAB
     Indication: NEOPLASM MALIGNANT
     Dosage: 1 MILLIGRAM/KILOGRAM
     Route: 042
     Dates: start: 20201130, end: 20201229
  2. OPDIVO [Suspect]
     Active Substance: NIVOLUMAB
     Indication: RENAL CANCER
     Dosage: 3 MILLIGRAM/KILOGRAM
     Route: 042
     Dates: start: 20201130, end: 20201229

REACTIONS (1)
  - Haemophagocytic lymphohistiocytosis [Fatal]

NARRATIVE: CASE EVENT DATE: 20210121
